FAERS Safety Report 21608322 (Version 1)
Quarter: 2022Q4

REPORT INFORMATION
  Report Type: Spontaneous
  Country: CN (occurrence: CN)
  Receive Date: 20221117
  Receipt Date: 20221117
  Transmission Date: 20230113
  Serious: Yes (Other)
  Sender: FDA-Public Use
  Company Number: CN-BRISTOL-MYERS SQUIBB COMPANY-2022-138104

PATIENT
  Age: 45 Year
  Sex: Male

DRUGS (2)
  1. NIVOLUMAB [Suspect]
     Active Substance: NIVOLUMAB
     Indication: Epstein-Barr virus test
     Dosage: 200MG, 14 DAYS PER CYCLE, MONOTHERAPY FOR FIVE CYCLES
     Route: 065
  2. NIVOLUMAB [Suspect]
     Active Substance: NIVOLUMAB
     Indication: Gastric cancer

REACTIONS (3)
  - Dermatitis exfoliative [Unknown]
  - Rash [Unknown]
  - Prescribed underdose [Unknown]
